FAERS Safety Report 14657244 (Version 1)
Quarter: 2018Q1

REPORT INFORMATION
  Report Type: Spontaneous
  Country: CN (occurrence: CN)
  Receive Date: 20180319
  Receipt Date: 20180319
  Transmission Date: 20180509
  Serious: Yes (Other)
  Sender: FDA-Public Use
  Company Number: CN-ALLERGAN-1814044US

PATIENT
  Age: 58 Year
  Sex: Female

DRUGS (2)
  1. MORPHINE SULFATE UNK [Suspect]
     Active Substance: MORPHINE SULFATE
     Indication: NECK PAIN
  2. MORPHINE SULFATE UNK [Suspect]
     Active Substance: MORPHINE SULFATE
     Indication: NECK PAIN
     Dosage: UNK, UNKNOWN
     Route: 065

REACTIONS (12)
  - Facial paresis [Recovered/Resolved]
  - Agitation [Recovered/Resolved]
  - Slow response to stimuli [Recovered/Resolved]
  - Blood pressure increased [Recovered/Resolved]
  - Change in sustained attention [Recovered/Resolved]
  - Drug ineffective [Unknown]
  - Eye pain [Recovered/Resolved]
  - Vertigo [Recovered/Resolved]
  - Nerve injury [Recovered/Resolved]
  - Cough [Recovered/Resolved]
  - Headache [Recovered/Resolved]
  - Somnolence [Recovered/Resolved]
